FAERS Safety Report 14343740 (Version 2)
Quarter: 2024Q3

REPORT INFORMATION
  Report Type: Spontaneous
  Country: US (occurrence: US)
  Receive Date: 20180102
  Receipt Date: 20240802
  Transmission Date: 20241016
  Serious: Yes (Other)
  Sender: PFIZER
  Company Number: US-MLMSERVICE-20161205-0523978-1

PATIENT
  Age: 17 Year
  Sex: Male

DRUGS (2)
  1. TACROLIMUS [Suspect]
     Active Substance: TACROLIMUS
     Indication: Nephrotic syndrome
     Dosage: UNK
  2. TACROLIMUS [Suspect]
     Active Substance: TACROLIMUS
     Dosage: DOSE OF TACROLIMUS WAS INCREASED 4 MONTHS PRIOR TO ADMISSION

REACTIONS (4)
  - Myelofibrosis [Recovered/Resolved]
  - Erythropoiesis abnormal [Recovered/Resolved]
  - Pancytopenia [Recovered/Resolved]
  - Megakaryocytes abnormal [Recovered/Resolved]
